FAERS Safety Report 12738339 (Version 2)
Quarter: 2017Q1

REPORT INFORMATION
  Report Type: Spontaneous
  Country: US (occurrence: US)
  Receive Date: 20160913
  Receipt Date: 20170221
  Transmission Date: 20170428
  Serious: No
  Sender: FDA-Public Use
  Company Number: US-PFIZER INC-2016425322

PATIENT
  Age: 58 Year
  Sex: Female

DRUGS (1)
  1. SUTENT [Suspect]
     Active Substance: SUNITINIB MALATE
     Indication: DUCTAL ADENOCARCINOMA OF PANCREAS
     Dosage: 37.5 MG, 1X/DAY
     Route: 048

REACTIONS (2)
  - Diarrhoea [Unknown]
  - Gastrooesophageal reflux disease [Unknown]
